FAERS Safety Report 7378324-8 (Version None)
Quarter: 2011Q1

REPORT INFORMATION
  Report Type: 
  Country: None (occurrence: None)
  Receive Date: 20110328
  Receipt Date: 20110316
  Transmission Date: 20110831
  Serious: Yes (Other)
  Sender: FDA-Public Use
  Company Number: JP-ASTRAZENECA-2011SE16877

PATIENT
  Age: 52 Year
  Sex: Male

DRUGS (2)
  1. BLOPRESS [Suspect]
     Dosage: CANDESARTAN CILEXETIL 16 MG/HYDROCHLOROTHIAZIDE 12.5 MG.
     Route: 048
  2. BLOPRESS [Suspect]
     Indication: HYPERTENSION
     Dosage: CANDESARTAN CILEXETIL 16 MG/HYDROCHLOROTHIAZIDE 12.5 MG.
     Route: 048

REACTIONS (3)
  - ERYTHEMA [None]
  - LARYNGEAL OEDEMA [None]
  - SEXUAL DYSFUNCTION [None]
